FAERS Safety Report 8164009-7 (Version None)
Quarter: 2012Q1

REPORT INFORMATION
  Report Type: 
  Country: None (occurrence: None)
  Receive Date: 20120224
  Receipt Date: 20120211
  Transmission Date: 20120608
  Serious: Yes (Other)
  Sender: FDA-Public Use
  Company Number: CHPA2012US003128

PATIENT
  Age: 29 Year
  Sex: Female

DRUGS (1)
  1. EXCEDRIN EXTRA STRENGTH TABLETS [Suspect]
     Indication: HEADACHE
     Dosage: 2 DF, UNK
     Route: 048
     Dates: end: 20111201

REACTIONS (4)
  - KIDNEY INFECTION [None]
  - CHILLS [None]
  - KIDNEY ENLARGEMENT [None]
  - HEADACHE [None]
